FAERS Safety Report 6695490-8 (Version None)
Quarter: 2010Q2

REPORT INFORMATION
  Report Type: 
  Country: None (occurrence: None)
  Receive Date: 20100426
  Receipt Date: 20100412
  Transmission Date: 20101027
  Serious: Yes (Other)
  Sender: FDA-Public Use
  Company Number: US-ASTRAZENECA-2009UW19580

PATIENT
  Sex: Male

DRUGS (7)
  1. SEROQUEL [Suspect]
     Indication: DEPRESSION
     Dosage: 25-100 MG DAILY
     Route: 048
     Dates: start: 20011005
  2. TRAZODONE HCL [Concomitant]
     Dosage: 50-100 MG
     Dates: start: 20070101
  3. HYDROXYZINE [Concomitant]
     Dates: start: 20070101
  4. LOPID [Concomitant]
     Dates: start: 20070101
  5. LISINOPRIL [Concomitant]
     Dosage: 10-80 MG DAILY
     Dates: start: 20070101
  6. CYMBALTA [Concomitant]
     Dates: start: 20090101
  7. COREG [Concomitant]

REACTIONS (3)
  - ERECTILE DYSFUNCTION [None]
  - NEUROPATHY PERIPHERAL [None]
  - TYPE 2 DIABETES MELLITUS [None]
